FAERS Safety Report 11413856 (Version 1)
Quarter: 2015Q3

REPORT INFORMATION
  Report Type: Report from Study
  Country: AU (occurrence: AU)
  Receive Date: 20150824
  Receipt Date: 20150824
  Transmission Date: 20151125
  Serious: Yes (Other)
  Sender: FDA-Public Use
  Company Number: PHHY2013AU125804

PATIENT
  Age: 21 Year
  Sex: Male

DRUGS (6)
  1. PHOSPHATE SANDOZ [Concomitant]
     Indication: PRODUCT USED FOR UNKNOWN INDICATION
     Route: 065
     Dates: start: 2005
  2. DIGOXIN. [Concomitant]
     Active Substance: DIGOXIN
     Indication: PRODUCT USED FOR UNKNOWN INDICATION
     Route: 065
     Dates: start: 201301
  3. SOM230 [Suspect]
     Active Substance: PASIREOTIDE
     Dosage: 40 MG (ONCE IN EVERY 28 DAYS/PER MONTH)
     Route: 065
     Dates: start: 20130922
  4. SOM230 [Suspect]
     Active Substance: PASIREOTIDE
     Dosage: 40 MG (ONCE IN EVERY 28 DAYS/PER MONTH)
     Route: 065
     Dates: start: 20130821
  5. CABERGOLINE. [Concomitant]
     Active Substance: CABERGOLINE
     Indication: PRODUCT USED FOR UNKNOWN INDICATION
     Route: 065
     Dates: start: 2009
  6. SOM230 [Suspect]
     Active Substance: PASIREOTIDE
     Indication: ACROMEGALY
     Dosage: 40 MG (ONCE IN EVERY 28 DAYS/PER MONTH)
     Route: 065
     Dates: start: 20130725

REACTIONS (3)
  - Off label use [Unknown]
  - Drug ineffective [Unknown]
  - Type 2 diabetes mellitus [Unknown]

NARRATIVE: CASE EVENT DATE: 20131025
